FAERS Safety Report 23744191 (Version 1)
Quarter: 2024Q2

REPORT INFORMATION
  Report Type: Spontaneous
  Country: ES (occurrence: ES)
  Receive Date: 20240415
  Receipt Date: 20240415
  Transmission Date: 20240716
  Serious: Yes (Hospitalization, Other)
  Sender: FDA-Public Use
  Company Number: ES-SUN PHARMACEUTICAL INDUSTRIES LTD-2024RR-442386

PATIENT
  Age: 70 Year
  Sex: Male
  Weight: 83.6 kg

DRUGS (1)
  1. TEMOZOLOMIDE [Suspect]
     Active Substance: TEMOZOLOMIDE
     Indication: Glioblastoma multiforme
     Dosage: 140 MILLIGRAM, QD
     Route: 048
     Dates: start: 20240102

REACTIONS (4)
  - Hepatitis [Recovering/Resolving]
  - Acute kidney injury [Recovering/Resolving]
  - Hypocoagulable state [Recovering/Resolving]
  - Hyperbilirubinaemia [Recovering/Resolving]

NARRATIVE: CASE EVENT DATE: 20240115
